FAERS Safety Report 19481525 (Version 3)
Quarter: 2021Q3

REPORT INFORMATION
  Report Type: Spontaneous
  Country: JP (occurrence: JP)
  Receive Date: 20210701
  Receipt Date: 20210910
  Transmission Date: 20211014
  Serious: Yes (Death, Other)
  Sender: FDA-Public Use
  Company Number: JP-PFIZER INC-2021777733

PATIENT
  Age: 72 Year
  Sex: Male
  Weight: 57.5 kg

DRUGS (1)
  1. LORBRENA [Suspect]
     Active Substance: LORLATINIB
     Indication: NON-SMALL CELL LUNG CANCER
     Dosage: 100 MG, DAILY
     Route: 048
     Dates: start: 20210105, end: 20210127

REACTIONS (3)
  - Thrombophlebitis migrans [Unknown]
  - Disease recurrence [Unknown]
  - Cerebral infarction [Fatal]
